FAERS Safety Report 14313783 (Version 1)
Quarter: 2017Q4

REPORT INFORMATION
  Report Type: Spontaneous
  Country: DE (occurrence: DE)
  Receive Date: 20171221
  Receipt Date: 20171221
  Transmission Date: 20180321
  Serious: Yes (Other)
  Sender: FDA-Public Use
  Company Number: PHHY2017DE185780

PATIENT
  Age: 79 Year
  Sex: Female

DRUGS (10)
  1. DELIX [Concomitant]
     Active Substance: RAMIPRIL
     Indication: PRODUCT USED FOR UNKNOWN INDICATION
     Route: 065
  2. TAVOR (LORAZEPAM) [Concomitant]
     Active Substance: LORAZEPAM
     Indication: PRODUCT USED FOR UNKNOWN INDICATION
     Route: 065
  3. CONCOR [Concomitant]
     Active Substance: BISOPROLOL FUMARATE
     Indication: PRODUCT USED FOR UNKNOWN INDICATION
     Route: 065
  4. BUPRE ? 1A PHARMA [Suspect]
     Active Substance: BUPRENORPHINE
     Dosage: 5 UG, UNK
     Route: 062
  5. AMITRIPTYLINE [Concomitant]
     Active Substance: AMITRIPTYLINE
     Indication: PRODUCT USED FOR UNKNOWN INDICATION
     Route: 065
  6. NEURO-RATIOPHARM N [Concomitant]
     Indication: PRODUCT USED FOR UNKNOWN INDICATION
     Route: 065
  7. BUPRE ? 1A PHARMA [Suspect]
     Active Substance: BUPRENORPHINE
     Dosage: 10 UG/HR, UNK
     Route: 062
     Dates: start: 20171203
  8. BUPRE ? 1A PHARMA [Suspect]
     Active Substance: BUPRENORPHINE
     Indication: PAIN
     Dosage: 5 UG, UNK
     Route: 062
  9. MARCUMAR [Concomitant]
     Active Substance: PHENPROCOUMON
     Indication: PRODUCT USED FOR UNKNOWN INDICATION
     Route: 065
  10. VITAMIN D [Concomitant]
     Active Substance: CHOLECALCIFEROL
     Indication: PRODUCT USED FOR UNKNOWN INDICATION
     Route: 065

REACTIONS (7)
  - Chest pain [Unknown]
  - Drug effect incomplete [Unknown]
  - Skin burning sensation [Unknown]
  - Angina pectoris [Unknown]
  - Asthenia [Unknown]
  - Fatigue [Unknown]
  - Abnormal dreams [Unknown]
